FAERS Safety Report 5818586-9 (Version None)
Quarter: 2008Q3

REPORT INFORMATION
  Report Type: 
  Country: None (occurrence: None)
  Receive Date: 20080717
  Receipt Date: 20080707
  Transmission Date: 20090109
  Serious: Yes (Other)
  Sender: FDA-Public Use
  Company Number: CHPA2008US11563

PATIENT
  Age: 75 Year
  Sex: Male

DRUGS (2)
  1. GAS-X CHEWABLE TABLETS UNKNOWN (NCH)(SIMETHICONE) CHEWABLE TABLET [Suspect]
     Indication: FLATULENCE
     Dosage: 1 TABLET THREE TIMES A DAY, ORAL
     Route: 048
  2. DRUG THERAPY NOS  (DRUG THERAPY NOS) [Concomitant]

REACTIONS (3)
  - BLOOD CHOLESTEROL INCREASED [None]
  - HYPERTENSION [None]
  - THERAPEUTIC RESPONSE DECREASED [None]
